FAERS Safety Report 13165891 (Version 2)
Quarter: 2020Q2

REPORT INFORMATION
  Report Type: Spontaneous
  Country: CA (occurrence: CA)
  Receive Date: 20170131
  Receipt Date: 20200507
  Transmission Date: 20200713
  Serious: Yes (Life-Threatening, Other)
  Sender: FDA-Public Use
  Company Number: CA-TEVA-734156ACC

PATIENT
  Age: 61 Year
  Sex: Female
  Weight: 66 kg

DRUGS (8)
  1. RATIO-CODEINE [Suspect]
     Active Substance: CODEINE PHOSPHATE
     Indication: PRODUCT USED FOR UNKNOWN INDICATION
     Route: 065
  2. CISPLATIN INJECTION [Suspect]
     Active Substance: CISPLATIN
     Indication: PRODUCT USED FOR UNKNOWN INDICATION
     Route: 065
  3. COVERSYL [Suspect]
     Active Substance: PERINDOPRIL
     Indication: PRODUCT USED FOR UNKNOWN INDICATION
     Route: 065
  4. RATIO-EMTEC-30 [Concomitant]
     Active Substance: ACETAMINOPHEN\CODEINE PHOSPHATE
  5. FELODIPINE. [Suspect]
     Active Substance: FELODIPINE
     Indication: PRODUCT USED FOR UNKNOWN INDICATION
     Route: 065
  6. ATIVAN [Suspect]
     Active Substance: LORAZEPAM
     Indication: PRODUCT USED FOR UNKNOWN INDICATION
     Route: 065
  7. NEXIUM [Suspect]
     Active Substance: ESOMEPRAZOLE MAGNESIUM
     Indication: PRODUCT USED FOR UNKNOWN INDICATION
     Route: 065
  8. ETOPOSIDE INJECTION [Suspect]
     Active Substance: ETOPOSIDE
     Indication: NEOPLASM MALIGNANT
     Dosage: 390 MILLIGRAM DAILY;
     Route: 042

REACTIONS (8)
  - Erythema [Recovered/Resolved]
  - Back pain [Recovered/Resolved]
  - Heart rate decreased [Recovered/Resolved]
  - Hypopnoea [Recovered/Resolved]
  - Unresponsive to stimuli [Recovered/Resolved]
  - Visual impairment [Recovered/Resolved]
  - Incontinence [Recovered/Resolved]
  - Respiratory rate decreased [Recovered/Resolved]
